FAERS Safety Report 8423125 (Version 2)
Quarter: 2012Q4

REPORT INFORMATION
  Report Type: 
  Country: US (occurrence: US)
  Receive Date: 20120223
  Receipt Date: 20121124
  Transmission Date: 20130627
  Serious: Yes (Hospitalization)
  Sender: FDA-Public Use
  Company Number: US-BAYER-2012-016329

PATIENT
  Sex: Female

DRUGS (1)
  1. BAYER GENUINE ASPIRIN ORIGINAL STRENGTH [Suspect]
     Indication: PAIN RELIEF
     Dosage: 1 DF, QD
     Route: 048
     Dates: start: 2009

REACTIONS (8)
  - Pain [None]
  - Thrombosis [None]
  - Thrombosis [None]
  - Pulmonary embolism [None]
  - Cardiac arrest [None]
  - Unresponsive to stimuli [None]
  - Pulse absent [None]
  - Drug ineffective [None]
